FAERS Safety Report 4794802-X (Version None)
Quarter: 2005Q3

REPORT INFORMATION
  Report Type: 
  Country: None (occurrence: None)
  Receive Date: 20050914
  Receipt Date: 20041005
  Transmission Date: 20060218
  Serious: Yes (Hospitalization)
  Sender: FDA-Public Use
  Company Number: 163-20785-04100101

PATIENT
  Age: 57 Year
  Sex: Female
  Weight: 76.6579 kg

DRUGS (7)
  1. THALOMID [Suspect]
     Indication: OVARIAN CANCER
     Dosage: 400 MG, DAILY, ORAL
     Route: 048
     Dates: start: 20040802
  2. TOPOTECAN (TOPOTECAN) (UNKNOWN) [Suspect]
     Indication: OVARIAN CANCER
     Dosage: 2.2 MG, Q 21 DAYS, INTRAVENOUS
     Route: 042
     Dates: start: 20040802, end: 20040917
  3. ZYRTEC [Concomitant]
  4. PROTONIX [Concomitant]
  5. MIRALAX [Concomitant]
  6. DARVOCET [Concomitant]
  7. XANAX [Concomitant]

REACTIONS (1)
  - PULMONARY EMBOLISM [None]
